FAERS Safety Report 9242359 (Version 1)
Quarter: 2013Q2

REPORT INFORMATION
  Report Type: Other
  Country: US (occurrence: US)
  Receive Date: 20130419
  Receipt Date: 20130419
  Transmission Date: 20140414
  Serious: Yes (Hospitalization)
  Sender: FDA-Public Use
  Company Number: US-BRISTOL-MYERS SQUIBB COMPANY-18765149

PATIENT
  Age: 46 Year
  Sex: Male

DRUGS (4)
  1. METFORMIN HCL [Suspect]
     Indication: DIABETES MELLITUS
  2. NYQUIL [Suspect]
     Route: 048
  3. LEVOTHYROXINE [Suspect]
     Indication: HYPOTHYROIDISM
  4. SERTRALINE [Suspect]
     Indication: DEPRESSION

REACTIONS (4)
  - Serotonin syndrome [Recovered/Resolved]
  - Cough [Unknown]
  - Nasal congestion [Unknown]
  - Insomnia [Unknown]
